FAERS Safety Report 20468849 (Version 1)
Quarter: 2022Q1

REPORT INFORMATION
  Report Type: Spontaneous
  Country: US (occurrence: US)
  Receive Date: 20220214
  Receipt Date: 20220214
  Transmission Date: 20220424
  Serious: Yes (Other)
  Sender: FDA-Public Use
  Company Number: US-GLAXOSMITHKLINE- US2022GSK022053

PATIENT
  Sex: Female

DRUGS (4)
  1. RANITIDINE [Suspect]
     Active Substance: RANITIDINE
     Indication: Abdominal discomfort
     Dosage: 150 MG, QD
     Route: 065
     Dates: start: 201902, end: 201909
  2. RANITIDINE [Suspect]
     Active Substance: RANITIDINE
     Indication: Abdominal discomfort
     Dosage: 150 MG, QD
     Route: 065
     Dates: start: 201902, end: 201909
  3. ZANTAC [Suspect]
     Active Substance: RANITIDINE HYDROCHLORIDE
     Indication: Abdominal discomfort
     Dosage: PERIODS OF NON-USE (AT LEAST 3 MONTHS WITHOUT USE),IT WAS FOR WEEKS OF USE AND THEN PERIODICALLY
     Route: 065
     Dates: start: 201401, end: 201901
  4. RANITIDINE [Suspect]
     Active Substance: RANITIDINE
     Indication: Abdominal discomfort
     Dosage: PERIODS OF NON-USE (AT LEAST 3 MONTHS WITHOUT USE),IT WAS FOR WEEKS OF USE AND THEN PERIODICALLY
     Route: 065
     Dates: start: 201401, end: 201901

REACTIONS (1)
  - Breast cancer [Unknown]
